FAERS Safety Report 8931905 (Version 1)
Quarter: 2012Q4

REPORT INFORMATION
  Report Type: 
  Country: CH (occurrence: CH)
  Receive Date: 20121128
  Receipt Date: 20121128
  Transmission Date: 20130627
  Serious: Yes (Hospitalization, Other)
  Sender: FDA-Public Use
  Company Number: CH-PFIZER INC-2012296346

PATIENT
  Age: 82 Year
  Sex: Female

DRUGS (11)
  1. TRIATEC [Suspect]
     Indication: PRIMARY HYPERTENSION
     Dosage: 5 mg, daily
     Route: 048
     Dates: start: 200911
  2. METOLAZONE [Suspect]
     Indication: HEART DISEASE, UNSPECIFIED
     Dosage: 5 mg, daily
     Route: 048
     Dates: start: 200911
  3. TORASEMIDE [Suspect]
     Indication: PRIMARY HYPERTENSION
     Dosage: 50 mg, UNK
     Route: 048
     Dates: start: 20091105
  4. SERESTA [Suspect]
     Indication: DEPRESSIVE EPISODE
     Dosage: 1 DF, UNK
     Route: 048
     Dates: start: 200911
  5. ASPIRIN CARDIO [Concomitant]
     Dosage: UNK
  6. AMLODIPINE BESILATE [Concomitant]
     Dosage: UNK
  7. NITRODERM [Concomitant]
     Dosage: UNK
  8. BELOC [Concomitant]
     Dosage: UNK
  9. MAGNESIUM ASPARTATE HYDROCHLORIDE [Concomitant]
     Dosage: UNK
     Dates: start: 200911
  10. SERETIDE DISKUS [Concomitant]
     Dosage: UNK
  11. CALCIMAGON-D3 [Concomitant]
     Dosage: UNK

REACTIONS (5)
  - Renal failure chronic [Recovering/Resolving]
  - Stupor [Recovered/Resolved]
  - Dehydration [Recovered/Resolved]
  - Hypokalaemia [Recovered/Resolved]
  - Hyponatraemia [Recovered/Resolved]
